FAERS Safety Report 9589872 (Version 1)
Quarter: 2013Q4

REPORT INFORMATION
  Report Type: Spontaneous
  Country: US (occurrence: US)
  Receive Date: 20131003
  Receipt Date: 20131003
  Transmission Date: 20140711
  Serious: No
  Sender: FDA-Public Use
  Company Number: US-AMGEN-USASP2012073125

PATIENT
  Sex: Male
  Weight: 108.84 kg

DRUGS (5)
  1. ENBREL [Suspect]
     Indication: RHEUMATOID ARTHRITIS
     Dosage: 50 MG, QWK
     Route: 058
  2. METHOTREXATE                       /00113802/ [Concomitant]
     Dosage: 2.5 MG, UNK
  3. COUMADIN                           /00014802/ [Concomitant]
     Dosage: 1 MG, UNK
  4. VITAMIN B12                        /00056201/ [Concomitant]
     Dosage: 1000 CR
  5. VITAMIN D3 [Concomitant]
     Dosage: UNK

REACTIONS (2)
  - Arthralgia [Unknown]
  - Mobility decreased [Unknown]
